FAERS Safety Report 7320677-0 (Version None)
Quarter: 2011Q1

REPORT INFORMATION
  Report Type: 
  Country: None (occurrence: None)
  Receive Date: 20110228
  Receipt Date: 20110215
  Transmission Date: 20110831
  Serious: Yes (Other)
  Sender: FDA-Public Use
  Company Number: US-ROCHE-734463

PATIENT
  Sex: Male
  Weight: 79.4 kg

DRUGS (3)
  1. ACCUTANE [Suspect]
     Indication: ACNE
     Route: 065
     Dates: start: 19940401, end: 19941001
  2. ACCUTANE [Suspect]
     Route: 065
     Dates: start: 19981207, end: 19990531
  3. ACCUTANE [Suspect]
     Route: 065
     Dates: start: 19990618

REACTIONS (13)
  - COLITIS ULCERATIVE [None]
  - IRRITABLE BOWEL SYNDROME [None]
  - ANAL FISTULA [None]
  - ABDOMINAL PAIN [None]
  - ARTHRALGIA [None]
  - ANAEMIA [None]
  - DIZZINESS [None]
  - DEFAECATION URGENCY [None]
  - NAUSEA [None]
  - INFLAMMATORY BOWEL DISEASE [None]
  - RECTAL POLYP [None]
  - CROHN'S DISEASE [None]
  - RECTAL HAEMORRHAGE [None]
